FAERS Safety Report 8959172 (Version 1)
Quarter: 2012Q4

REPORT INFORMATION
  Report Type: 
  Country: US (occurrence: US)
  Receive Date: 20121212
  Receipt Date: 20121212
  Transmission Date: 20130627
  Serious: Yes (Death)
  Sender: FDA-Public Use
  Company Number: US-TEVA-374780USA

PATIENT
  Sex: Male

DRUGS (1)
  1. PROVIGIL [Suspect]
     Indication: ALTERED STATE OF CONSCIOUSNESS
     Dosage: 400 Milligram Daily;

REACTIONS (2)
  - Brain neoplasm [Fatal]
  - Off label use [Unknown]
